FAERS Safety Report 7127912-2 (Version None)
Quarter: 2010Q4

REPORT INFORMATION
  Report Type: 
  Country: None (occurrence: None)
  Receive Date: 20101130
  Receipt Date: 20101122
  Transmission Date: 20110411
  Serious: Yes (Other)
  Sender: FDA-Public Use
  Company Number: DE-PFIZER INC-2010151573

PATIENT
  Age: 79 Year
  Sex: Male
  Weight: 85 kg

DRUGS (12)
  1. PANTOPRAZOLE SODIUM [Suspect]
     Dosage: 20 MG; 4 DOSE FORMS ONCE
  2. DIGITOXIN [Concomitant]
     Dosage: 0.07 - 4 DOSE FORMS ONCE
  3. METFORMIN [Concomitant]
     Dosage: 1000 - 8 DOSE FORMS ONCE
  4. MIRTAZAPINE [Concomitant]
     Dosage: 30 - 4 DOSE FORMS ONCE
  5. ZOPICLONE [Concomitant]
     Dosage: 7.5 - 4 DOSE FORMS ONCE
  6. BISOPROLOL [Concomitant]
     Dosage: 5 - 4 DOSE FORMS ONCE
  7. LISINOPRIL [Concomitant]
     Dosage: 20 - 4 DOSE FORMS ONCE
  8. HYDROCHLOROTHIAZIDE [Concomitant]
     Dosage: 12.5 - 4 DOSE FORMS ONCE
  9. TAMSULOSIN [Concomitant]
     Dosage: 0.4 - 4 DOSE FORMS ONCE
  10. ACETYLCYSTEINE [Concomitant]
     Dosage: 600 - 4 DOSE FORMS ONCE
  11. ASS [Concomitant]
     Dosage: 100 - 4 DOSE FORMS ONCE
  12. MAGNESIUM [Concomitant]
     Dosage: 4 DOSE FORMS ONCE

REACTIONS (1)
  - SUICIDE ATTEMPT [None]
